FAERS Safety Report 22331492 (Version 9)
Quarter: 2024Q3

REPORT INFORMATION
  Report Type: Spontaneous
  Country: US (occurrence: US)
  Receive Date: 20230517
  Receipt Date: 20240923
  Transmission Date: 20241016
  Serious: No
  Sender: PHARMING GROUP
  Company Number: US-PHARMING-PHAUS2023000374

PATIENT

DRUGS (11)
  1. RUCONEST [Suspect]
     Active Substance: CONESTAT ALFA
     Indication: Hereditary angioedema
     Dosage: 4200 IU, TWICE WEEKLY
     Route: 042
     Dates: start: 202209
  2. RUCONEST [Suspect]
     Active Substance: CONESTAT ALFA
     Dosage: 4200 IU, TWICE WEEKLY
     Route: 042
     Dates: start: 202209
  3. RUCONEST [Suspect]
     Active Substance: CONESTAT ALFA
     Dosage: 4200 IU, TWICE WEEKLY
     Route: 042
     Dates: start: 202209
  4. RUCONEST [Suspect]
     Active Substance: CONESTAT ALFA
     Dosage: 4200 IU, TWICE WEEKLY
     Route: 042
     Dates: start: 202209
  5. RUCONEST [Suspect]
     Active Substance: CONESTAT ALFA
     Dosage: 4200 IU, TWICE WEEKLY
     Route: 042
     Dates: start: 202209
  6. RUCONEST [Suspect]
     Active Substance: CONESTAT ALFA
     Dosage: 4200 IU, TWICE WEEKLY
     Route: 042
     Dates: start: 202209
  7. RUCONEST [Suspect]
     Active Substance: CONESTAT ALFA
     Dosage: 4200 IU, TWICE WEEKLY
     Route: 042
     Dates: start: 202209
  8. RUCONEST [Suspect]
     Active Substance: CONESTAT ALFA
     Dosage: 4200 IU, TWICE WEEKLY
     Route: 042
     Dates: start: 202209
  9. ICATIBANT [Concomitant]
     Active Substance: ICATIBANT ACETATE
     Indication: Hereditary angioedema
     Dosage: UNK, PRN
  10. EPIPEN [Concomitant]
     Active Substance: EPINEPHRINE
     Indication: Hereditary angioedema
  11. TAKHZYRO [Concomitant]
     Active Substance: LANADELUMAB-FLYO
     Indication: Product used for unknown indication

REACTIONS (5)
  - Electric shock [Unknown]
  - Weight fluctuation [Unknown]
  - Condition aggravated [Unknown]
  - Skin atrophy [Unknown]
  - Intentional product use issue [Unknown]
